FAERS Safety Report 6177812-X (Version None)
Quarter: 2009Q2

REPORT INFORMATION
  Report Type: 
  Country: None (occurrence: None)
  Receive Date: 20090504
  Receipt Date: 20080709
  Transmission Date: 20091009
  Serious: Yes (Hospitalization)
  Sender: FDA-Public Use
  Company Number: CA-ABBOTT-08P-028-0452072-00

PATIENT
  Sex: Male
  Weight: 47.6 kg

DRUGS (3)
  1. LUPRON DEPOT 4 MONTH 30 MG INJECTION [Suspect]
     Indication: PROSTATE CANCER
     Route: 030
     Dates: start: 20061024, end: 20080128
  2. ALENDRONATE SODIUM [Concomitant]
     Indication: DRUG USE FOR UNKNOWN INDICATION
     Route: 048
  3. CALCIUM D3 [Concomitant]
     Indication: DRUG USE FOR UNKNOWN INDICATION
     Route: 048

REACTIONS (5)
  - DECREASED APPETITE [None]
  - DEMENTIA ALZHEIMER'S TYPE [None]
  - GAIT DISTURBANCE [None]
  - METASTASES TO SPINE [None]
  - RENAL DISORDER [None]
